FAERS Safety Report 25794713 (Version 1)
Quarter: 2025Q3

REPORT INFORMATION
  Report Type: Spontaneous
  Country: JP (occurrence: JP)
  Receive Date: 20250912
  Receipt Date: 20250912
  Transmission Date: 20251020
  Serious: Yes (Hospitalization)
  Sender: JOHNSON AND JOHNSON
  Company Number: JP-JNJFOC-20250915322

PATIENT
  Age: 87 Year
  Sex: Male

DRUGS (2)
  1. ZYTIGA [Suspect]
     Active Substance: ABIRATERONE ACETATE
     Indication: Prostate cancer
     Route: 048
  2. PREDONINE [Concomitant]
     Active Substance: PREDNISOLONE
     Indication: Prostate cancer
     Route: 065

REACTIONS (1)
  - Peripheral arterial occlusive disease [Unknown]
